FAERS Safety Report 24908733 (Version 3)
Quarter: 2025Q3

REPORT INFORMATION
  Report Type: Report from Study
  Country: US (occurrence: US)
  Receive Date: 20250131
  Receipt Date: 20250809
  Transmission Date: 20251021
  Serious: Yes (Other)
  Sender: ALEXION PHARMACEUTICALS
  Company Number: US-ASTRAZENECA-202410USA006473US

PATIENT
  Sex: Female

DRUGS (1)
  1. ANIFROLUMAB [Suspect]
     Active Substance: ANIFROLUMAB
     Dosage: STRENGTH: 150 MG/ML, 300 MILLIGRAM, Q4W
     Dates: start: 20240120

REACTIONS (7)
  - Epistaxis [Not Recovered/Not Resolved]
  - Drug effect less than expected [Recovering/Resolving]
  - Fatigue [Unknown]
  - Stomatitis [Not Recovered/Not Resolved]
  - Systemic lupus erythematosus [Unknown]
  - Back pain [Not Recovered/Not Resolved]
  - Inappropriate schedule of product administration [Unknown]
